FAERS Safety Report 13364281 (Version 1)
Quarter: 2017Q1

REPORT INFORMATION
  Report Type: Spontaneous
  Country: US (occurrence: US)
  Receive Date: 20170323
  Receipt Date: 20170323
  Transmission Date: 20170429
  Serious: No
  Sender: FDA-Public Use
  Company Number: US-ROCHE-1340360

PATIENT
  Sex: Male

DRUGS (3)
  1. XOLAIR [Suspect]
     Active Substance: OMALIZUMAB
     Route: 058
     Dates: end: 201301
  2. XOLAIR [Suspect]
     Active Substance: OMALIZUMAB
     Indication: URTICARIA
     Route: 058
     Dates: start: 201312
  3. PREDNISONE. [Concomitant]
     Active Substance: PREDNISONE
     Dosage: 5-7 MG
     Route: 065

REACTIONS (3)
  - Fatigue [Recovered/Resolved]
  - Pain in extremity [Unknown]
  - Pain [Unknown]
